FAERS Safety Report 7518540-5 (Version None)
Quarter: 2011Q2

REPORT INFORMATION
  Report Type: 
  Country: None (occurrence: None)
  Receive Date: 20110601
  Receipt Date: 20110601
  Transmission Date: 20111010
  Serious: Yes (Life-Threatening)
  Sender: FDA-Public Use
  Company Number: None

PATIENT
  Sex: Female
  Weight: 58.9676 kg

DRUGS (1)
  1. LEXAPRO [Suspect]
     Indication: DEPRESSION
     Dates: start: 20110407, end: 20110430

REACTIONS (4)
  - ANXIETY [None]
  - EMOTIONAL DISORDER [None]
  - SUICIDAL BEHAVIOUR [None]
  - DEPRESSED MOOD [None]
